FAERS Safety Report 25653078 (Version 1)
Quarter: 2025Q3

REPORT INFORMATION
  Report Type: Spontaneous
  Country: US (occurrence: US)
  Receive Date: 20250807
  Receipt Date: 20250807
  Transmission Date: 20251021
  Serious: No
  Sender: UNITED THERAPEUTICS
  Company Number: US-UNITED THERAPEUTICS-UNT-2025-021538

PATIENT
  Sex: Female

DRUGS (8)
  1. TYVASO DPI [Suspect]
     Active Substance: TREPROSTINIL
     Indication: Pulmonary arterial hypertension
     Dosage: 48 ?G, QID
     Dates: start: 202306
  2. TYVASO DPI [Suspect]
     Active Substance: TREPROSTINIL
     Indication: Interstitial lung disease
  3. TYVASO DPI [Suspect]
     Active Substance: TREPROSTINIL
     Indication: Pulmonary arterial hypertension
  4. TYVASO DPI [Suspect]
     Active Substance: TREPROSTINIL
     Indication: Interstitial lung disease
  5. ASPIRIN [Suspect]
     Active Substance: ASPIRIN
     Indication: Product used for unknown indication
  6. ELIQUIS [Suspect]
     Active Substance: APIXABAN
     Indication: Product used for unknown indication
  7. PLAVIX [Suspect]
     Active Substance: CLOPIDOGREL BISULFATE
     Indication: Product used for unknown indication
  8. TREPROSTINIL [Suspect]
     Active Substance: TREPROSTINIL
     Indication: Product used for unknown indication

REACTIONS (1)
  - Vaginal haemorrhage [Unknown]
